FAERS Safety Report 24230290 (Version 3)
Quarter: 2024Q3

REPORT INFORMATION
  Report Type: Report from Study
  Country: CN (occurrence: CN)
  Receive Date: 20240821
  Receipt Date: 20240914
  Transmission Date: 20241017
  Serious: Yes (Hospitalization)
  Sender: ABBVIE
  Company Number: CN-ABBVIE-5880307

PATIENT
  Age: 22 Year
  Sex: Male
  Weight: 63 kg

DRUGS (7)
  1. HUMIRA [Suspect]
     Active Substance: ADALIMUMAB
     Indication: Crohn^s disease
     Dosage: FORM STRENGTH: 40 MILLIGRAM
     Route: 058
     Dates: start: 20230124, end: 20230124
  2. VITAMIN B6 [Concomitant]
     Active Substance: PYRIDOXINE HYDROCHLORIDE
     Indication: Crohn^s disease
     Dosage: 4 MILLILITER
     Route: 042
     Dates: start: 20230122, end: 20230128
  3. POTASSIUM CHLORIDE [Concomitant]
     Active Substance: POTASSIUM CHLORIDE
     Indication: Crohn^s disease
     Dosage: 10 MILLILITER; 10%
     Route: 042
     Dates: start: 20230122, end: 20230128
  4. VITAMIN C [Concomitant]
     Active Substance: ASCORBIC ACID
     Indication: Crohn^s disease
     Dosage: 10 MILLILITER
     Route: 042
     Dates: start: 20230122, end: 20230128
  5. LANSOPRAZOLE [Concomitant]
     Active Substance: LANSOPRAZOLE
     Indication: Crohn^s disease
     Dosage: 30 MILLIGRAM
     Route: 042
     Dates: start: 20230122, end: 20230126
  6. Live combined bifidobacterium, lactobacillus and enterococcus [Concomitant]
     Indication: Crohn^s disease
     Route: 048
     Dates: start: 20230122, end: 20230124
  7. MOXIFLOXACIN [Concomitant]
     Active Substance: MOXIFLOXACIN
     Indication: Crohn^s disease
     Dosage: 0.4 GRAM
     Route: 042
     Dates: start: 20230122, end: 20230126

REACTIONS (2)
  - Ileus [Recovered/Resolved]
  - Crohn^s disease [Recovered/Resolved]

NARRATIVE: CASE EVENT DATE: 20230203
